FAERS Safety Report 10537820 (Version 1)
Quarter: 2014Q4

REPORT INFORMATION
  Report Type: Spontaneous
  Country: US (occurrence: None)
  Receive Date: 20141022
  Receipt Date: 20141022
  Transmission Date: 20150529
  Serious: Yes (Other)
  Sender: FDA-Public Use
  Company Number: None

PATIENT
  Age: 79 Year
  Sex: Male

DRUGS (5)
  1. WARFARIN [Concomitant]
     Active Substance: WARFARIN
  2. CISPLATIN. [Suspect]
     Active Substance: CISPLATIN
     Indication: NEOPLASM MALIGNANT
     Dosage: 35MG/M2 Q2WKS IV
     Route: 042
     Dates: start: 20141006
  3. GEMCITABINE [Suspect]
     Active Substance: GEMCITABINE\GEMCITABINE HYDROCHLORIDE
     Indication: NEOPLASM MALIGNANT
     Dosage: 1000MG/M2 Q2WKS IV
     Route: 042
     Dates: start: 20141006
  4. ALBUTEROL. [Concomitant]
     Active Substance: ALBUTEROL
  5. NARELTO [Concomitant]

REACTIONS (3)
  - Pain in extremity [None]
  - Thrombocytopenia [None]
  - Deep vein thrombosis [None]

NARRATIVE: CASE EVENT DATE: 20141011
